FAERS Safety Report 6692340-0 (Version None)
Quarter: 2010Q2

REPORT INFORMATION
  Report Type: 
  Country: None (occurrence: None)
  Receive Date: 20100422
  Receipt Date: 20100416
  Transmission Date: 20101027
  Serious: Yes (Other)
  Sender: FDA-Public Use
  Company Number: DE-JNJCH-2010009105

PATIENT
  Sex: Female

DRUGS (1)
  1. REGAINE 2% [Suspect]
     Indication: DRUG USE FOR UNKNOWN INDICATION
     Dosage: TEXT:UNKNOWN
     Route: 061

REACTIONS (3)
  - ARRHYTHMIA [None]
  - CARDIOVASCULAR DISORDER [None]
  - SYNCOPE [None]
